FAERS Safety Report 12957159 (Version 3)
Quarter: 2019Q2

REPORT INFORMATION
  Report Type: Other
  Country: US (occurrence: US)
  Receive Date: 20161118
  Receipt Date: 20190624
  Transmission Date: 20190711
  Serious: Yes (Other)
  Sender: FDA-Public Use
  Company Number: US-BELCHER PHARMACEUTICALS, LLC-2016VTS00188

PATIENT
  Sex: Male
  Weight: 190.93 kg

DRUGS (9)
  1. HYOSCYAMINE SULFATE. [Suspect]
     Active Substance: HYOSCYAMINE SULFATE
     Indication: ABDOMINAL PAIN UPPER
     Dosage: UNK, DAILY OR AS NEEDED BEFORE MEALS
     Route: 060
     Dates: start: 201606, end: 201607
  2. NUVIGIL [Concomitant]
     Active Substance: ARMODAFINIL
  3. ADDERALL [Concomitant]
     Active Substance: AMPHETAMINE ASPARTATE\AMPHETAMINE SULFATE\DEXTROAMPHETAMINE SACCHARATE\DEXTROAMPHETAMINE SULFATE
     Dosage: UNK, AS NEEDED
  4. NAPROXEN. [Concomitant]
     Active Substance: NAPROXEN
     Dosage: UNK, AS NEEDED
  5. ALLOPURINOL. [Concomitant]
     Active Substance: ALLOPURINOL
  6. UNSPECIFIED MEDICATION PRESCRIBED BY RHEUMATOLOGIST [Concomitant]
  7. UNSPECIFIED PAIN MEDICATION [Concomitant]
     Active Substance: UNSPECIFIED INGREDIENT
  8. EDARBYCLOR [Concomitant]
     Active Substance: AZILSARTAN KAMEDOXOMIL\CHLORTHALIDONE
  9. CLONIDINE. [Concomitant]
     Active Substance: CLONIDINE
     Dosage: 0.1 MG, 1X/DAY

REACTIONS (13)
  - Discomfort [Unknown]
  - Laboratory test abnormal [Unknown]
  - Vision blurred [Unknown]
  - Rheumatoid arthritis [Not Recovered/Not Resolved]
  - Therapeutic product effect increased [Recovered/Resolved]
  - Hepatitis [Unknown]
  - Impaired work ability [Not Recovered/Not Resolved]
  - Fatigue [Unknown]
  - Hallucination [Recovered/Resolved]
  - Lower limb fracture [Unknown]
  - Dizziness [Recovered/Resolved]
  - Muscle strain [Unknown]
  - Dry mouth [Recovered/Resolved]

NARRATIVE: CASE EVENT DATE: 2016
